FAERS Safety Report 15334610 (Version 1)
Quarter: 2018Q3

REPORT INFORMATION
  Report Type: Spontaneous
  Country: US (occurrence: US)
  Receive Date: 20180827
  Receipt Date: 20180827
  Transmission Date: 20181010
  Serious: Yes (Hospitalization)
  Sender: FDA-Public Use
  Company Number: None

PATIENT
  Age: 76 Year
  Sex: Male
  Weight: 84 kg

DRUGS (1)
  1. WARFARIN [Suspect]
     Active Substance: WARFARIN
     Indication: DEEP VEIN THROMBOSIS
     Dates: start: 20180718, end: 20180805

REACTIONS (5)
  - Malaise [None]
  - Haematuria [None]
  - Decreased appetite [None]
  - Pyrexia [None]
  - Urinary retention [None]

NARRATIVE: CASE EVENT DATE: 20180806
